FAERS Safety Report 8534195-5 (Version None)
Quarter: 2012Q3

REPORT INFORMATION
  Report Type: 
  Country: None (occurrence: None)
  Receive Date: 20120724
  Receipt Date: 20120714
  Transmission Date: 20120928
  Serious: Yes (Hospitalization)
  Sender: FDA-Public Use
  Company Number: JP-ACTELION-A-CH2012-68808

PATIENT
  Age: 58 Year
  Sex: Female

DRUGS (2)
  1. TRACLEER [Suspect]
     Indication: PULMONARY ARTERIAL HYPERTENSION
     Dosage: 125 MG, OD
     Route: 048
  2. TRACLEER [Suspect]
     Dosage: 250 MG, OD
     Route: 048

REACTIONS (1)
  - HEPATIC ENZYME INCREASED [None]
